FAERS Safety Report 5612416-6 (Version None)
Quarter: 2008Q1

REPORT INFORMATION
  Report Type: 
  Country: None (occurrence: None)
  Receive Date: 20080201
  Receipt Date: 20080201
  Transmission Date: 20080703
  Serious: Yes (Hospitalization)
  Sender: FDA-Public Use
  Company Number: None

PATIENT
  Sex: Female
  Weight: 98 kg

DRUGS (1)
  1. BYETTA [Suspect]
     Indication: DIABETES MELLITUS
     Dosage: 5 MCG Q SQ
     Route: 058
     Dates: start: 20080102, end: 20080123

REACTIONS (2)
  - DIABETIC KETOACIDOSIS [None]
  - PANCREATITIS ACUTE [None]
